FAERS Safety Report 4948355-3 (Version None)
Quarter: 2006Q1

REPORT INFORMATION
  Report Type: 
  Country: None (occurrence: None)
  Receive Date: 20060320
  Receipt Date: 20060308
  Transmission Date: 20060701
  Serious: Yes (Other)
  Sender: FDA-Public Use
  Company Number: US-BRISTOL-MYERS SQUIBB COMPANY-13319579

PATIENT
  Age: 31 Year
  Sex: Male

DRUGS (26)
  1. STAVUDINE [Suspect]
     Indication: HIV INFECTION
  2. INDINIVIR SULFATE [Suspect]
     Indication: HIV INFECTION
  3. NELFINAVIR [Suspect]
     Indication: HIV INFECTION
     Dosage: DOSAGE FORM-CAPSULES: RITONAVIR 400 MG + LOPINAVIR 100 MG
  4. ZIDOVUDINE [Suspect]
     Indication: HIV INFECTION
  5. LAMIVUDINE [Suspect]
     Indication: HIV INFECTION
  6. CLARITHROMYCIN [Concomitant]
  7. AZITHROMYCIN [Concomitant]
  8. PENTAMIDINE [Concomitant]
  9. ERYTHROMYCIN [Concomitant]
  10. RIFABUTIN [Concomitant]
  11. CEFAZOLIN [Concomitant]
  12. AMIKACIN SULFATE [Concomitant]
  13. SULFAMETHOXAZOLE + TRIMETHOPRIM [Concomitant]
  14. ETHAMBUTOL HYDROCHLORIDE [Concomitant]
  15. DAPSONE [Concomitant]
  16. CLOFAZIMINE [Concomitant]
  17. CLINDAMYCIN [Concomitant]
  18. CIPROFLOXACIN HCL [Concomitant]
  19. FLUCONAZOLE [Concomitant]
  20. METRONIDAZOLE HCL [Concomitant]
  21. HEPARIN [Concomitant]
  22. ALBUTEROL [Concomitant]
  23. LORAZEPAM [Concomitant]
  24. PREDNISONE [Concomitant]
  25. METOPROLOL [Concomitant]
  26. HYDROMORPHONE HCL [Concomitant]

REACTIONS (2)
  - TORSADE DE POINTES [None]
  - VENTRICULAR TACHYCARDIA [None]
